FAERS Safety Report 9227138 (Version 1)
Quarter: 2013Q2

REPORT INFORMATION
  Report Type: Spontaneous
  Country: US (occurrence: None)
  Receive Date: 20130411
  Receipt Date: 20130411
  Transmission Date: 20140414
  Serious: Yes (Death)
  Sender: FDA-Public Use
  Company Number: None

PATIENT
  Age: 13 Year
  Sex: Male

DRUGS (2)
  1. RAPAMUNE [Suspect]
     Route: 048
     Dates: start: 20130301, end: 20130404
  2. ETOPOSIDE [Suspect]
     Route: 048
     Dates: start: 20120323, end: 20130404

REACTIONS (1)
  - Neoplasm malignant [None]
